APPROVED DRUG PRODUCT: DESMOPRESSIN ACETATE
Active Ingredient: DESMOPRESSIN ACETATE
Strength: 0.1MG
Dosage Form/Route: TABLET;ORAL
Application: A213095 | Product #001 | TE Code: AB
Applicant: AUROBINDO PHARMA LTD
Approved: Mar 21, 2024 | RLD: No | RS: No | Type: RX